FAERS Safety Report 11390903 (Version 2)
Quarter: 2015Q3

REPORT INFORMATION
  Report Type: Spontaneous
  Country: DE (occurrence: DE)
  Receive Date: 20150818
  Receipt Date: 20150918
  Transmission Date: 20151125
  Serious: Yes (Other)
  Sender: FDA-Public Use
  Company Number: DE-ROCHE-1622370

PATIENT
  Age: 81 Year
  Sex: Female

DRUGS (7)
  1. LUCENTIS [Suspect]
     Active Substance: RANIBIZUMAB
     Dosage: EVERY 4 WEEKS
     Route: 050
     Dates: start: 20150804
  2. VENOSTASIN [Concomitant]
     Route: 065
  3. MUCOSOLVAN [Concomitant]
     Active Substance: AMBROXOL\CLENBUTEROL
     Route: 065
  4. BERODUAL [Concomitant]
     Active Substance: FENOTEROL HYDROBROMIDE\IPRATROPIUM BROMIDE
  5. LUCENTIS [Suspect]
     Active Substance: RANIBIZUMAB
     Indication: MACULAR DEGENERATION
     Dosage: EVERY 4 WEEKS
     Route: 050
     Dates: start: 201212
  6. MACROGOL [Concomitant]
     Active Substance: POLYETHYLENE GLYCOLS
     Route: 065
  7. PULMICORT TURBUHALER [Concomitant]
     Active Substance: BUDESONIDE

REACTIONS (8)
  - Erythema [Recovering/Resolving]
  - Eye haemorrhage [Recovering/Resolving]
  - Incorrect route of drug administration [Unknown]
  - Swelling face [Recovering/Resolving]
  - Mass [Recovering/Resolving]
  - Skin fissures [Recovering/Resolving]
  - Facial pain [Recovering/Resolving]
  - Pruritus [Recovering/Resolving]

NARRATIVE: CASE EVENT DATE: 20150803
